FAERS Safety Report 23876852 (Version 1)
Quarter: 2024Q2

REPORT INFORMATION
  Report Type: Spontaneous
  Country: US (occurrence: US)
  Receive Date: 20240521
  Receipt Date: 20240521
  Transmission Date: 20240716
  Serious: Yes (Hospitalization, Other)
  Sender: FDA-Public Use
  Company Number: US-AMGEN-USASP2024096378

PATIENT
  Age: 76 Year
  Sex: Female

DRUGS (7)
  1. REPATHA [Suspect]
     Active Substance: EVOLOCUMAB
     Indication: Blood cholesterol increased
     Dosage: UNK, Q2WK
     Route: 058
     Dates: start: 2022
  2. SYNTHROID [Concomitant]
     Active Substance: LEVOTHYROXINE SODIUM
  3. ATENOLOL [Concomitant]
     Active Substance: ATENOLOL
  4. WARFARIN [Concomitant]
     Active Substance: WARFARIN
  5. IRBESARTAN [Concomitant]
     Active Substance: IRBESARTAN
  6. CHLORTHALIDONE [Concomitant]
     Active Substance: CHLORTHALIDONE
     Dosage: 25 MILLIGRAM
  7. ELIQUIS [Concomitant]
     Active Substance: APIXABAN

REACTIONS (10)
  - Memory impairment [Unknown]
  - Gastrointestinal disorder [Unknown]
  - Loss of consciousness [Unknown]
  - Pneumonia [Unknown]
  - Respiratory failure [Unknown]
  - Spinal fracture [Unknown]
  - Confusional state [Unknown]
  - COVID-19 [Unknown]
  - Vein collapse [Unknown]
  - Malaise [Unknown]

NARRATIVE: CASE EVENT DATE: 20230101
